FAERS Safety Report 9195443 (Version 3)
Quarter: 2013Q2

REPORT INFORMATION
  Report Type: Spontaneous
  Country: US (occurrence: US)
  Receive Date: 20130328
  Receipt Date: 20130430
  Transmission Date: 20140414
  Serious: Yes (Hospitalization, Other)
  Sender: FDA-Public Use
  Company Number: US-AMGEN-USASP2013021105

PATIENT
  Age: 55 Year
  Sex: Male
  Weight: 90 kg

DRUGS (2)
  1. ENBREL [Suspect]
     Indication: RHEUMATOID ARTHRITIS
     Dosage: 50 MG, QWK
  2. MTX                                /00113801/ [Concomitant]
     Dosage: UNK

REACTIONS (3)
  - Alcohol withdrawal syndrome [Unknown]
  - Pleural effusion [Unknown]
  - Cardiac failure congestive [Recovered/Resolved]
